FAERS Safety Report 24336511 (Version 1)
Quarter: 2024Q3

REPORT INFORMATION
  Report Type: Spontaneous
  Country: CH (occurrence: CH)
  Receive Date: 20240919
  Receipt Date: 20240919
  Transmission Date: 20241017
  Serious: Yes (Hospitalization, Other)
  Sender: AZURITY PHARMACEUTICALS
  Company Number: CH-AZURITY PHARMACEUTICALS, INC.-AZR202409-000616

PATIENT
  Age: 14 Year
  Sex: Female

DRUGS (1)
  1. METHOTREXATE [Suspect]
     Active Substance: METHOTREXATE
     Indication: Osteosarcoma
     Dosage: 12 GRAM PER SQUARE METRE, UNKNOWN
     Route: 042

REACTIONS (7)
  - Multiple organ dysfunction syndrome [Unknown]
  - Vasoplegia syndrome [Unknown]
  - Haemodynamic instability [Recovering/Resolving]
  - Toxicity to various agents [Recovering/Resolving]
  - Acute hepatic failure [Recovered/Resolved]
  - Encephalopathy [Unknown]
  - Acute kidney injury [Recovered/Resolved]
